FAERS Safety Report 13329921 (Version 4)
Quarter: 2018Q3

REPORT INFORMATION
  Report Type: Spontaneous
  Country: US (occurrence: US)
  Receive Date: 20170313
  Receipt Date: 20180718
  Transmission Date: 20181010
  Serious: Yes (Other)
  Sender: FDA-Public Use
  Company Number: US-PFIZER INC-2017095322

PATIENT
  Age: 28 Year
  Sex: Male
  Weight: 87 kg

DRUGS (2)
  1. ISUPREL [Suspect]
     Active Substance: ISOPROTERENOL HYDROCHLORIDE
     Dosage: 7 UG, UNK (2 UG, THEN 3 UG 5 MIN AFTER NO RESPONSE, THEN 2 UG 15 MIN LATER)
     Route: 042
     Dates: start: 20170228
  2. ISUPREL [Suspect]
     Active Substance: ISOPROTERENOL HYDROCHLORIDE
     Dosage: 7 UG, UNK (2 UG, THEN 3 UG 5 MIN AFTER NO RESPONSE, THEN 2 UG 15 MIN LATER)
     Route: 042
     Dates: start: 20170228

REACTIONS (2)
  - Heart rate decreased [Unknown]
  - Drug ineffective [Unknown]

NARRATIVE: CASE EVENT DATE: 20170228
